FAERS Safety Report 6458663-5 (Version None)
Quarter: 2009Q4

REPORT INFORMATION
  Report Type: 
  Country: None (occurrence: None)
  Receive Date: 20091127
  Receipt Date: 20091116
  Transmission Date: 20100525
  Serious: No
  Sender: FDA-Public Use
  Company Number: US-JNJFOC-20091105368

PATIENT
  Sex: Male
  Weight: 65.77 kg

DRUGS (2)
  1. DURAGESIC-100 [Suspect]
     Indication: SPINAL CORD INJURY
     Dosage: TWO PATCHES OF 100 UG/HR AND ONE PATCH OF 50 UG/HR (NDC# 50458-092-05)
     Route: 062
  2. NEURONTIN [Concomitant]
     Route: 065

REACTIONS (2)
  - DRUG EFFECT DECREASED [None]
  - INAPPROPRIATE SCHEDULE OF DRUG ADMINISTRATION [None]
